FAERS Safety Report 4942630-4 (Version None)
Quarter: 2006Q1

REPORT INFORMATION
  Report Type: 
  Country: None (occurrence: None)
  Receive Date: 20060310
  Receipt Date: 20060301
  Transmission Date: 20060701
  Serious: Yes (Hospitalization)
  Sender: FDA-Public Use
  Company Number: 2006BI003428

PATIENT
  Age: 44 Year
  Sex: Female
  Weight: 98.8842 kg

DRUGS (2)
  1. AVONEX [Suspect]
     Indication: MULTIPLE SCLEROSIS
     Dosage: 30 UG; QW; IM
     Route: 030
     Dates: start: 20050901
  2. LEXAPRO [Concomitant]

REACTIONS (4)
  - ANAEMIA [None]
  - ANKLE FRACTURE [None]
  - NAUSEA [None]
  - VIRAL INFECTION [None]
